FAERS Safety Report 6331644-8 (Version None)
Quarter: 2009Q3

REPORT INFORMATION
  Report Type: 
  Country: None (occurrence: None)
  Receive Date: 20090827
  Receipt Date: 20090824
  Transmission Date: 20100115
  Serious: Yes (Death, Hospitalization)
  Sender: FDA-Public Use
  Company Number: PHHY2009BR35720

PATIENT
  Sex: Male

DRUGS (3)
  1. DIOVAN [Suspect]
     Indication: CARDIAC DISORDER
     Dosage: HALF TABLET (160 MG) DAILY
     Route: 048
     Dates: start: 20060101
  2. LIPITOR [Concomitant]
  3. CARVEDILOL [Concomitant]

REACTIONS (4)
  - CEREBROVASCULAR ACCIDENT [None]
  - COLON CANCER [None]
  - COLON OPERATION [None]
  - MULTI-ORGAN FAILURE [None]
